FAERS Safety Report 16547628 (Version 1)
Quarter: 2019Q3

REPORT INFORMATION
  Report Type: Spontaneous
  Country: US (occurrence: US)
  Receive Date: 20190709
  Receipt Date: 20190709
  Transmission Date: 20191004
  Serious: No
  Sender: FDA-Public Use
  Company Number: US-BAUSCH-BL-2019-018439

PATIENT
  Sex: Male

DRUGS (1)
  1. LATANOPROST OPHTHALMIC SOLUTION 0.005% [Suspect]
     Active Substance: LATANOPROST
     Indication: GLAUCOMA
     Dosage: 1 DROP EVERY NIGHT IN EACH EYE
     Route: 047

REACTIONS (5)
  - Product substitution issue [Unknown]
  - Abnormal sensation in eye [Recovered/Resolved]
  - Product quality issue [Unknown]
  - Tremor [Unknown]
  - Product container issue [Unknown]

NARRATIVE: CASE EVENT DATE: 201906
